FAERS Safety Report 6740603-2 (Version None)
Quarter: 2010Q2

REPORT INFORMATION
  Report Type: 
  Country: None (occurrence: None)
  Receive Date: 20100525
  Receipt Date: 20100312
  Transmission Date: 20101027
  Serious: Yes (Hospitalization)
  Sender: FDA-Public Use
  Company Number: PHHY2010DK15221

PATIENT
  Sex: Female
  Weight: 59 kg

DRUGS (9)
  1. GLEEVEC [Suspect]
     Indication: NEPHROGENIC SYSTEMIC FIBROSIS
     Dosage: 400 MG, QD
     Route: 048
     Dates: start: 20091027, end: 20091115
  2. ARANESP [Concomitant]
     Route: 042
  3. ELTROXIN [Concomitant]
     Route: 048
  4. HJERTEMAGNYL [Concomitant]
     Route: 048
  5. RENAGEL [Concomitant]
     Dosage: UNK
     Route: 048
  6. DURAGESIC-100 [Concomitant]
     Route: 062
  7. PHOS-EX [Concomitant]
  8. INFLUENZA VACCINE [Concomitant]
     Dates: start: 20091112, end: 20091112
  9. VITAMINS [Concomitant]

REACTIONS (3)
  - GENERAL PHYSICAL HEALTH DETERIORATION [None]
  - INFECTION [None]
  - VOMITING [None]
